FAERS Safety Report 7016972-5 (Version None)
Quarter: 2010Q3

REPORT INFORMATION
  Report Type: 
  Country: None (occurrence: None)
  Receive Date: 20100927
  Receipt Date: 20100915
  Transmission Date: 20110219
  Serious: Yes (Other)
  Sender: FDA-Public Use
  Company Number: US-PFIZER INC-2010117643

PATIENT
  Sex: Male
  Weight: 77.098 kg

DRUGS (1)
  1. VIAGRA [Suspect]
     Indication: ERECTILE DYSFUNCTION
     Dosage: 100 MG, AS NEEDED
     Route: 048

REACTIONS (5)
  - ABASIA [None]
  - ERECTION INCREASED [None]
  - GAIT DISTURBANCE [None]
  - TESTICULAR DISORDER [None]
  - TESTICULAR SWELLING [None]
